FAERS Safety Report 5563694-3 (Version None)
Quarter: 2007Q4

REPORT INFORMATION
  Report Type: 
  Country: None (occurrence: None)
  Receive Date: 20071217
  Receipt Date: 20070717
  Transmission Date: 20080405
  Serious: Yes (Hospitalization)
  Sender: FDA-Public Use
  Company Number: US-ASTRAZENECA-2007UW17006

PATIENT
  Age: 78 Year
  Sex: Male

DRUGS (4)
  1. CRESTOR [Suspect]
     Route: 048
     Dates: start: 20070423
  2. LISINOPRIL [Concomitant]
  3. MIRALAX [Concomitant]
  4. PROCRIT [Concomitant]

REACTIONS (1)
  - PANCREATITIS [None]
